FAERS Safety Report 15723304 (Version 2)
Quarter: 2019Q2

REPORT INFORMATION
  Report Type: Report from Study
  Country: US (occurrence: US)
  Receive Date: 20181214
  Receipt Date: 20190507
  Transmission Date: 20190711
  Serious: No
  Sender: FDA-Public Use
  Company Number: PHEH2018US051901

PATIENT
  Sex: Male

DRUGS (1)
  1. COSENTYX [Suspect]
     Active Substance: SECUKINUMAB
     Indication: PRODUCT USED FOR UNKNOWN INDICATION
     Route: 065

REACTIONS (1)
  - Psoriasis [Unknown]
